FAERS Safety Report 15251700 (Version 1)
Quarter: 2018Q3

REPORT INFORMATION
  Report Type: Spontaneous
  Country: US (occurrence: US)
  Receive Date: 20180807
  Receipt Date: 20180807
  Transmission Date: 20181010
  Serious: Yes (Hospitalization)
  Sender: FDA-Public Use
  Company Number: US-MYLANLABS-2018M1059632

PATIENT
  Age: 34 Year
  Sex: Male

DRUGS (1)
  1. FENTANYL. [Suspect]
     Active Substance: FENTANYL
     Indication: PRODUCT USED FOR UNKNOWN INDICATION
     Route: 042

REACTIONS (5)
  - Respiratory rate decreased [Recovered/Resolved]
  - Drug abuse [Recovered/Resolved]
  - Miosis [Recovered/Resolved]
  - Mental status changes [Recovered/Resolved]
  - Toxicity to various agents [Recovered/Resolved]
